FAERS Safety Report 12218217 (Version 3)
Quarter: 2016Q2

REPORT INFORMATION
  Report Type: Spontaneous
  Country: US (occurrence: US)
  Receive Date: 20160329
  Receipt Date: 20160406
  Transmission Date: 20160815
  Serious: Yes (Hospitalization, Other)
  Sender: FDA-Public Use
  Company Number: US-JNJFOC-20160323737

PATIENT
  Sex: Female
  Weight: 61.24 kg

DRUGS (2)
  1. XARELTO [Suspect]
     Active Substance: RIVAROXABAN
     Indication: ATRIAL FIBRILLATION
     Route: 048
     Dates: start: 201312
  2. XARELTO [Suspect]
     Active Substance: RIVAROXABAN
     Indication: CEREBROVASCULAR ACCIDENT PROPHYLAXIS
     Route: 048
     Dates: start: 201312

REACTIONS (6)
  - Nausea [Unknown]
  - Anaemia [Recovering/Resolving]
  - Renal impairment [Unknown]
  - Inflammation [Unknown]
  - Parkinson^s disease [Not Recovered/Not Resolved]
  - Blood erythropoietin decreased [Unknown]

NARRATIVE: CASE EVENT DATE: 201404
